FAERS Safety Report 16655137 (Version 1)
Quarter: 2019Q3

REPORT INFORMATION
  Report Type: Spontaneous
  Country: HR (occurrence: HR)
  Receive Date: 20190801
  Receipt Date: 20190801
  Transmission Date: 20191004
  Serious: Yes (Other)
  Sender: FDA-Public Use
  Company Number: HR-ALKEM LABORATORIES LIMITED-HR-ALKEM-2019-03544

PATIENT
  Age: 73 Year
  Sex: Male

DRUGS (2)
  1. CEFUROXIME AXETIL. [Suspect]
     Active Substance: CEFUROXIME AXETIL
     Indication: PRODUCT USED FOR UNKNOWN INDICATION
     Dosage: UNK
     Route: 065
  2. AMOXICILLIN (AS TRIHYDRATE) AND CLAVULANIC ACID (AS POTASSIUM) [Suspect]
     Active Substance: AMOXICILLIN\CLAVULANATE POTASSIUM
     Indication: PRODUCT USED FOR UNKNOWN INDICATION
     Dosage: UNK
     Route: 065

REACTIONS (4)
  - Peak expiratory flow rate decreased [Unknown]
  - Flushing [Unknown]
  - Angioedema [Unknown]
  - Hypersensitivity [Unknown]
